FAERS Safety Report 19143544 (Version 2)
Quarter: 2021Q2

REPORT INFORMATION
  Report Type: Report from Study
  Country: CA (occurrence: CA)
  Receive Date: 20210415
  Receipt Date: 20210616
  Transmission Date: 20210717
  Serious: Yes (Hospitalization)
  Sender: FDA-Public Use
  Company Number: NVSC2020CA091443

PATIENT
  Age: 82 Year
  Sex: Male

DRUGS (9)
  1. TRAVATAN [Suspect]
     Active Substance: TRAVOPROST
     Indication: ASTHMA
     Dosage: UNK
     Route: 065
  2. ELIQUIS [Concomitant]
     Active Substance: APIXABAN
     Indication: HYPERTENSION
     Dosage: UNK
     Route: 065
  3. HYDROCHLOROTHIAZIDE. [Concomitant]
     Active Substance: HYDROCHLOROTHIAZIDE
     Indication: PRODUCT USED FOR UNKNOWN INDICATION
     Dosage: UNK
     Route: 065
  4. ELIQUIS [Concomitant]
     Active Substance: APIXABAN
     Indication: ATRIAL FIBRILLATION
  5. AZOPT [Suspect]
     Active Substance: BRINZOLAMIDE
     Indication: ASTHMA
     Dosage: UNK
     Route: 065
  6. OLMETEC [Concomitant]
     Active Substance: OLMESARTAN MEDOXOMIL
     Indication: PRODUCT USED FOR UNKNOWN INDICATION
     Route: 065
  7. RABEPRAZOLE [Concomitant]
     Active Substance: RABEPRAZOLE
     Indication: PRODUCT USED FOR UNKNOWN INDICATION
     Route: 065
  8. TELMISARTAN. [Concomitant]
     Active Substance: TELMISARTAN
     Indication: HYPERTENSION
     Dosage: UNK
     Route: 065
  9. PATADAY [Suspect]
     Active Substance: OLOPATADINE HYDROCHLORIDE
     Indication: CONJUNCTIVITIS ALLERGIC
     Dosage: UNK
     Route: 047

REACTIONS (25)
  - Rhinitis perennial [Unknown]
  - Haemoglobin decreased [Unknown]
  - Chronic obstructive pulmonary disease [Unknown]
  - Respiratory failure [Unknown]
  - Obstructive airways disorder [Unknown]
  - Sleep apnoea syndrome [Not Recovered/Not Resolved]
  - Hypersensitivity [Unknown]
  - Dyspnoea [Unknown]
  - Haematocrit decreased [Unknown]
  - Lymphocyte count decreased [Unknown]
  - Seasonal allergy [Unknown]
  - Product use in unapproved indication [Unknown]
  - Wheezing [Unknown]
  - Dyspepsia [Unknown]
  - Nasal congestion [Unknown]
  - Middle insomnia [Unknown]
  - Asthma [Unknown]
  - Cough [Unknown]
  - Red blood cell count decreased [Unknown]
  - Eye pruritus [Unknown]
  - Conjunctivitis allergic [Unknown]
  - Overweight [Unknown]
  - Blood immunoglobulin E increased [Unknown]
  - Upper-airway cough syndrome [Unknown]
  - Rhinorrhoea [Unknown]

NARRATIVE: CASE EVENT DATE: 20210322
